FAERS Safety Report 18351891 (Version 2)
Quarter: 2020Q4

REPORT INFORMATION
  Report Type: Report from Study
  Country: US (occurrence: US)
  Receive Date: 20201006
  Receipt Date: 20201027
  Transmission Date: 20210114
  Serious: Yes (Other)
  Sender: FDA-Public Use
  Company Number: US-SUNOVION-2020SUN002843

PATIENT
  Age: 70 Year
  Sex: Female

DRUGS (9)
  1. KYNMOBI [Suspect]
     Active Substance: APOMORPHINE HYDROCHLORIDE
     Indication: PARKINSON^S DISEASE
     Dosage: 30 MG
     Route: 060
     Dates: start: 20200928
  2. KYNMOBI [Suspect]
     Active Substance: APOMORPHINE HYDROCHLORIDE
     Dosage: 15 MG, TOTAL
     Route: 060
     Dates: start: 20200925, end: 20200925
  3. KYNMOBI [Suspect]
     Active Substance: APOMORPHINE HYDROCHLORIDE
     Dosage: 10 MG, TOTAL
     Route: 060
     Dates: start: 20200925, end: 20200925
  4. CARVEDILOL. [Concomitant]
     Active Substance: CARVEDILOL
     Dosage: 3.125MG/2 TABS PRN
  5. KYNMOBI [Suspect]
     Active Substance: APOMORPHINE HYDROCHLORIDE
     Dosage: 25 MG, TOTAL
     Route: 060
     Dates: start: 20200927, end: 20200927
  6. LEVODOPA [Concomitant]
     Active Substance: LEVODOPA
     Dosage: UNK
  7. TIGAN [Concomitant]
     Active Substance: TRIMETHOBENZAMIDE HYDROCHLORIDE
  8. KYNMOBI [Suspect]
     Active Substance: APOMORPHINE HYDROCHLORIDE
     Dosage: 20 MG, TOTAL
     Route: 060
     Dates: start: 20200926, end: 20200926
  9. CARBIDOPA. [Concomitant]
     Active Substance: CARBIDOPA
     Dosage: UNK

REACTIONS (15)
  - Headache [Unknown]
  - Blood pressure increased [Unknown]
  - Chest pain [Unknown]
  - Burning sensation [Unknown]
  - Feeling cold [Unknown]
  - Drug ineffective [Unknown]
  - Fatigue [Unknown]
  - Discomfort [Unknown]
  - Asthenopia [Unknown]
  - Tremor [Unknown]
  - Paraesthesia [Recovered/Resolved]
  - Hypoaesthesia [Unknown]
  - Neuralgia [Recovered/Resolved]
  - Head discomfort [Unknown]
  - Blood pressure decreased [Unknown]

NARRATIVE: CASE EVENT DATE: 20200925
